FAERS Safety Report 25424856 (Version 7)
Quarter: 2025Q4

REPORT INFORMATION
  Report Type: Report from Study
  Country: GB (occurrence: GB)
  Receive Date: 20250611
  Receipt Date: 20251110
  Transmission Date: 20260117
  Serious: Yes (Hospitalization, Disabling, Other)
  Sender: EMD SERONO INC
  Company Number: GB-Merck Healthcare KGaA-2025029685

PATIENT
  Age: 86 Year
  Sex: Female
  Weight: 91 kg

DRUGS (277)
  1. LEVOTHYROXINE SODIUM [Suspect]
     Active Substance: LEVOTHYROXINE SODIUM
     Indication: Atrial fibrillation
     Dosage: 5 MILLIGRAM, QD
  2. LEVOTHYROXINE SODIUM [Suspect]
     Active Substance: LEVOTHYROXINE SODIUM
     Indication: Cerebrovascular accident prophylaxis
     Dosage: 10 MG, QD (10 MILLIGRAM, QD)
  3. LEVOTHYROXINE SODIUM [Suspect]
     Active Substance: LEVOTHYROXINE SODIUM
     Dosage: 1 DF - 50G, ONCE DAILY (QD)
  4. LEVOTHYROXINE SODIUM [Suspect]
     Active Substance: LEVOTHYROXINE SODIUM
     Dosage: 50 MICROGRAM, ONCE A DAY (MORNING)
  5. LEVOTHYROXINE SODIUM [Suspect]
     Active Substance: LEVOTHYROXINE SODIUM
     Dosage: 1 DF, QD (50G, ONCE DAILY)
  6. LEVOTHYROXINE SODIUM [Suspect]
     Active Substance: LEVOTHYROXINE SODIUM
     Dosage: 12 UG DAILY
  7. LEVOTHYROXINE SODIUM [Suspect]
     Active Substance: LEVOTHYROXINE SODIUM
     Dosage: 30 MG, QD, ROUTE: UNKNOWN
  8. LEVOTHYROXINE SODIUM [Suspect]
     Active Substance: LEVOTHYROXINE SODIUM
     Dosage: 1 DF, UNK
  9. LEVOTHYROXINE SODIUM [Suspect]
     Active Substance: LEVOTHYROXINE SODIUM
     Dosage: UNK UNK, QD;
  10. LEVOTHYROXINE SODIUM [Suspect]
     Active Substance: LEVOTHYROXINE SODIUM
     Dosage: 50 UG, QD (MORNING), ROUTE: UNKNOWN
  11. LEVOTHYROXINE SODIUM [Suspect]
     Active Substance: LEVOTHYROXINE SODIUM
     Dosage: 1 DF - 50G, ONCE DAILY (QD)
  12. LEVOTHYROXINE SODIUM [Suspect]
     Active Substance: LEVOTHYROXINE SODIUM
     Dosage: 50 UG, QD
  13. LEVOTHYROXINE SODIUM [Suspect]
     Active Substance: LEVOTHYROXINE SODIUM
     Dosage: 10 MG, QD, ROUTE: UNKNOWN
  14. LEVOTHYROXINE SODIUM [Suspect]
     Active Substance: LEVOTHYROXINE SODIUM
     Dosage: 125 UG, QD
  15. LEVOTHYROXINE SODIUM [Suspect]
     Active Substance: LEVOTHYROXINE SODIUM
     Dosage: UNK UNK, QD
  16. LEVOTHYROXINE SODIUM [Suspect]
     Active Substance: LEVOTHYROXINE SODIUM
     Dosage: 125 ?G, QD (MORNING), ROUTE: UNKNOWN
  17. LEVOTHYROXINE SODIUM [Suspect]
     Active Substance: LEVOTHYROXINE SODIUM
     Dosage: 50 MG, QD, ROUTE: UNKNOWN
  18. LEVOTHYROXINE SODIUM [Suspect]
     Active Substance: LEVOTHYROXINE SODIUM
     Dosage: 50 ?G, QD, ROUTE: UNKNOWN
  19. LEVOTHYROXINE SODIUM [Suspect]
     Active Substance: LEVOTHYROXINE SODIUM
     Dosage: 3 MILLIGRAM, QD
  20. LEVOTHYROXINE SODIUM [Suspect]
     Active Substance: LEVOTHYROXINE SODIUM
     Dosage: 30 UG, QD MORNING, ROUTE: UNKNOWN
  21. LEVOTHYROXINE SODIUM [Suspect]
     Active Substance: LEVOTHYROXINE SODIUM
     Dosage: 125 G, QD, ROUTE: UNKNOWN
  22. LEVOTHYROXINE SODIUM [Suspect]
     Active Substance: LEVOTHYROXINE SODIUM
     Dosage: UNK, ROUTE: UNKNOWN, DOSE FORM: ORAL POWDER
  23. LEVOTHYROXINE SODIUM [Suspect]
     Active Substance: LEVOTHYROXINE SODIUM
     Dosage: UNK UNK, QD, ROUTE: UNKNOWN
  24. LEVOTHYROXINE SODIUM [Suspect]
     Active Substance: LEVOTHYROXINE SODIUM
     Dosage: 50 MG DAILY, DOSE FORM: POWDER
  25. LEVOTHYROXINE SODIUM [Suspect]
     Active Substance: LEVOTHYROXINE SODIUM
     Dosage: 1 DF, ROUTE: UNKNOWN
  26. LEVOTHYROXINE SODIUM [Suspect]
     Active Substance: LEVOTHYROXINE SODIUM
     Dosage: 12 ?G, QD, ROUTE: UNKNOWN
  27. LEVOTHYROXINE SODIUM [Suspect]
     Active Substance: LEVOTHYROXINE SODIUM
     Dosage: UNK
  28. LEVOTHYROXINE SODIUM [Suspect]
     Active Substance: LEVOTHYROXINE SODIUM
     Dosage: 12 MG, QD, ROUTE: UNKNOWN
  29. LEVOTHYROXINE SODIUM [Suspect]
     Active Substance: LEVOTHYROXINE SODIUM
     Dosage: 1 DF, QD, ROUTE: UNKNOWN
  30. LEVOTHYROXINE SODIUM [Suspect]
     Active Substance: LEVOTHYROXINE SODIUM
     Dosage: 50 MILLIGRAM, QD
     Dates: start: 20180207, end: 20180207
  31. LEVOTHYROXINE SODIUM [Suspect]
     Active Substance: LEVOTHYROXINE SODIUM
     Dosage: 10 MG, QD OFF LABEL DOSING FREQUENCY
  32. LEVOTHYROXINE SODIUM [Suspect]
     Active Substance: LEVOTHYROXINE SODIUM
     Dosage: 12 UG DAILY
  33. LEVOTHYROXINE SODIUM [Suspect]
     Active Substance: LEVOTHYROXINE SODIUM
     Dosage: 1 DF, TABLET, ROUTE: UNKNOWN
  34. LEVOTHYROXINE SODIUM [Suspect]
     Active Substance: LEVOTHYROXINE SODIUM
     Dosage: UNK UNK, QD, ROUTE: UNKNOWN
  35. LEVOTHYROXINE SODIUM [Suspect]
     Active Substance: LEVOTHYROXINE SODIUM
     Dosage: 50 G, QD, DOSE FORM: TABLET
  36. LEVOTHYROXINE SODIUM [Suspect]
     Active Substance: LEVOTHYROXINE SODIUM
  37. LEVOTHYROXINE SODIUM [Suspect]
     Active Substance: LEVOTHYROXINE SODIUM
     Dosage: 50 G DAILY
  38. LEVOTHYROXINE SODIUM [Suspect]
     Active Substance: LEVOTHYROXINE SODIUM
     Dosage: 1 G, QD, ROUTE: UNKNOWN
  39. LEVOTHYROXINE SODIUM [Suspect]
     Active Substance: LEVOTHYROXINE SODIUM
     Dosage: 1 DF, QD, ROUTE: UNKNOWN
  40. BISOPROLOL FUMARATE [Suspect]
     Active Substance: BISOPROLOL FUMARATE
     Indication: Cerebrovascular accident prophylaxis
     Dosage: 5 MG, QD
  41. BISOPROLOL FUMARATE [Suspect]
     Active Substance: BISOPROLOL FUMARATE
     Dosage: 5 MG, QD
     Dates: start: 20180207, end: 20180207
  42. BISOPROLOL FUMARATE [Suspect]
     Active Substance: BISOPROLOL FUMARATE
     Dosage: 10 MG QD; OFF LABEL USE
  43. BISOPROLOL FUMARATE [Suspect]
     Active Substance: BISOPROLOL FUMARATE
     Dosage: 10 MG QD
  44. BISOPROLOL [Suspect]
     Active Substance: BISOPROLOL
     Indication: Cerebrovascular accident prophylaxis
     Dosage: 5 MG DAILY
  45. BISOPROLOL [Suspect]
     Active Substance: BISOPROLOL
     Dosage: 5 MG DAILY, ROUTE: UNKNOWN
  46. BISOPROLOL [Suspect]
     Active Substance: BISOPROLOL
     Dosage: 5, 2 SEPARATE DOSES, 1/DAY
  47. BISOPROLOL [Suspect]
     Active Substance: BISOPROLOL
     Dosage: 10 MG, QD, ROUTE: UNKNOWN
  48. BISOPROLOL [Suspect]
     Active Substance: BISOPROLOL
     Dosage: 5 MG DAILY
  49. BISOPROLOL [Suspect]
     Active Substance: BISOPROLOL
     Dosage: 5 MG DAILY
  50. BISOPROLOL [Suspect]
     Active Substance: BISOPROLOL
     Dosage: 5 MG DAILY
  51. BISOPROLOL [Suspect]
     Active Substance: BISOPROLOL
     Dosage: 5 MG, QD OFF LABEL USE, ROUTE: UNKNOWN
  52. BISOPROLOL [Suspect]
     Active Substance: BISOPROLOL
     Dosage: 5 MG DAILY
  53. BISOPROLOL [Suspect]
     Active Substance: BISOPROLOL
     Dosage: 5 MG DAILY
  54. BISOPROLOL [Suspect]
     Active Substance: BISOPROLOL
     Dosage: 10 MG DAILY
  55. BISOPROLOL [Suspect]
     Active Substance: BISOPROLOL
     Dosage: 5 MG DAILY
  56. BISOPROLOL [Suspect]
     Active Substance: BISOPROLOL
     Dosage: 5 , 2 SEPARATE DOSES, 1/DAY
  57. BISOPROLOL [Suspect]
     Active Substance: BISOPROLOL
     Dosage: 10 MG (1 DAY)10 MG, QD; OFF LABEL USE
  58. BISOPROLOL [Suspect]
     Active Substance: BISOPROLOL
     Dosage: 10 MG, QD, 10 MG (1 DAY), ROUTE: UNKNOWN
  59. BISOPROLOL [Suspect]
     Active Substance: BISOPROLOL
     Dosage: 10 MG DAILY
  60. BISOPROLOL [Suspect]
     Active Substance: BISOPROLOL
     Dosage: 5 MG DAILY
  61. BISOPROLOL [Suspect]
     Active Substance: BISOPROLOL
     Dosage: 10 MG DAILY
  62. BISOPROLOL [Suspect]
     Active Substance: BISOPROLOL
     Dosage: 10 MG (1 DAY)10 MG, QD; OFF LABEL USE
     Dates: end: 20180207
  63. BISOPROLOL [Suspect]
     Active Substance: BISOPROLOL
     Dosage: 5 MG DAILY
  64. BISOPROLOL [Suspect]
     Active Substance: BISOPROLOL
     Dosage: 10 MG (1 DAY)10 MG, QD; OFF LABEL USE
  65. BISOPROLOL [Suspect]
     Active Substance: BISOPROLOL
     Dosage: 10 MG DAILY
  66. BISOPROLOL [Suspect]
     Active Substance: BISOPROLOL
     Dosage: 10 MG DAILY
  67. BISOPROLOL [Suspect]
     Active Substance: BISOPROLOL
     Dosage: 10 MG DAILY
  68. BISOPROLOL [Suspect]
     Active Substance: BISOPROLOL
     Dosage: 10 MG, QD, ROUTE: UNKNOWN
  69. BISOPROLOL [Suspect]
     Active Substance: BISOPROLOL
     Dosage: 5 MG, QD; OFF LABEL USE
  70. BISOPROLOL [Suspect]
     Active Substance: BISOPROLOL
     Dosage: 10 MG DAILY
  71. BISOPROLOL [Suspect]
     Active Substance: BISOPROLOL
     Dosage: 5 MG DAILY
  72. BISOPROLOL [Suspect]
     Active Substance: BISOPROLOL
     Dosage: 10 MG DAILY
  73. BISOPROLOL [Suspect]
     Active Substance: BISOPROLOL
     Dosage: 10 MG DAILY
  74. BISOPROLOL [Suspect]
     Active Substance: BISOPROLOL
     Dosage: 5 MG, QD; OFF LABEL USE
  75. BISOPROLOL [Suspect]
     Active Substance: BISOPROLOL
     Dosage: 10 MG, QD (1 DAY);OFF LABEL USE, ROUTE: UNKNOWN
  76. BISOPROLOL [Suspect]
     Active Substance: BISOPROLOL
     Dosage: 5 MG DAILY
  77. BISOPROLOL [Suspect]
     Active Substance: BISOPROLOL
     Dosage: 10 MG DAILY
  78. BISOPROLOL [Suspect]
     Active Substance: BISOPROLOL
     Dosage: 5 MG DAILY
  79. BISOPROLOL [Suspect]
     Active Substance: BISOPROLOL
     Dosage: 10 MG, QD
  80. BISOPROLOL [Suspect]
     Active Substance: BISOPROLOL
     Dosage: 5 MG DAILY
  81. BISOPROLOL [Suspect]
     Active Substance: BISOPROLOL
     Dosage: 5 , 2 SEPARATE DOSES, 1/DAY
  82. BISOPROLOL [Suspect]
     Active Substance: BISOPROLOL
     Dosage: 10 MG, QD, 10 MG (1 DAY), ROUTE: UNKNOWN
  83. BISOPROLOL [Suspect]
     Active Substance: BISOPROLOL
     Dosage: 5 MG, QD
  84. LANSOPRAZOLE [Suspect]
     Active Substance: LANSOPRAZOLE
     Indication: Atrial fibrillation
     Dosage: 5 MG, QD, ROUTE: UNKNOWN
     Dates: end: 20220218
  85. LANSOPRAZOLE [Suspect]
     Active Substance: LANSOPRAZOLE
     Indication: Cerebrovascular accident prophylaxis
     Dosage: 30 MG, QD
  86. LANSOPRAZOLE [Suspect]
     Active Substance: LANSOPRAZOLE
     Dosage: 10 MILLIGRAM, QD
  87. LANSOPRAZOLE [Suspect]
     Active Substance: LANSOPRAZOLE
     Dosage: 10 MG, QD
     Dates: start: 20180207, end: 20180218
  88. LANSOPRAZOLE [Suspect]
     Active Substance: LANSOPRAZOLE
     Dosage: 5 MG, QD
     Dates: start: 20220207, end: 20220218
  89. LANSOPRAZOLE [Suspect]
     Active Substance: LANSOPRAZOLE
     Dosage: 10 MILLIGRAM, QD
  90. LANSOPRAZOLE [Suspect]
     Active Substance: LANSOPRAZOLE
     Dosage: 30 MG, QD
  91. LANSOPRAZOLE [Suspect]
     Active Substance: LANSOPRAZOLE
     Dosage: 12 MICROGRAM, ONCE A DAY
  92. SIMVASTATIN [Suspect]
     Active Substance: SIMVASTATIN
     Indication: Product used for unknown indication
     Dosage: 40 MILLIGRAM, QD
  93. SIMVASTATIN [Suspect]
     Active Substance: SIMVASTATIN
     Dosage: 40 MILLIGRAM, QD
  94. SIMVASTATIN [Suspect]
     Active Substance: SIMVASTATIN
     Dosage: DOSAGE TEXT: 40 MILLIGRAM, DAILY (NIGHT); NUMBER OF SEPARATE DOSES:
  95. SIMVASTATIN [Suspect]
     Active Substance: SIMVASTATIN
     Dosage: 40 MILLIGRAM, QD
  96. SIMVASTATIN [Suspect]
     Active Substance: SIMVASTATIN
     Dosage: 40 MILLIGRAM, QD
  97. SIMVASTATIN [Suspect]
     Active Substance: SIMVASTATIN
     Dosage: 40 MILLIGRAM, QD
  98. SIMVASTATIN [Suspect]
     Active Substance: SIMVASTATIN
     Dosage: 40 MILLIGRAM, QD
  99. SIMVASTATIN [Suspect]
     Active Substance: SIMVASTATIN
     Dosage: 40 MG AT NIGHT
  100. SIMVASTATIN [Suspect]
     Active Substance: SIMVASTATIN
     Dosage: UNK (TAKE ONE AT NIGHT)
  101. SIMVASTATIN [Suspect]
     Active Substance: SIMVASTATIN
     Dosage: UNK (TAKE ONE AT NIGHT)
  102. ISOSORBIDE MONONITRATE [Suspect]
     Active Substance: ISOSORBIDE MONONITRATE
     Indication: Coronary artery disease
     Dosage: DOSAGE TEXT: NUMBER OF SEPARATE DOSES:
  103. CANDESARTAN [Suspect]
     Active Substance: CANDESARTAN
     Indication: Cerebrovascular accident prophylaxis
     Dosage: DOSAGE TEXT: 2 MILLIGRAM, ONCE A DAY (MORNING); NUMBER OF SEPARATE DOSES:
  104. HYDROCHLOROTHIAZIDE [Suspect]
     Active Substance: HYDROCHLOROTHIAZIDE
     Indication: Cerebrovascular accident prophylaxis
     Dosage: UNK
  105. HYDROCHLOROTHIAZIDE [Suspect]
     Active Substance: HYDROCHLOROTHIAZIDE
     Dosage: 1 DF, QD (MORNING)
  106. HYDROCHLOROTHIAZIDE [Suspect]
     Active Substance: HYDROCHLOROTHIAZIDE
     Dosage: 1 DF, QD (MORNING)
  107. HYDROCHLOROTHIAZIDE [Suspect]
     Active Substance: HYDROCHLOROTHIAZIDE
     Dosage: DOSAGE: 10 MG/ML
  108. HYDROCHLOROTHIAZIDE [Suspect]
     Active Substance: HYDROCHLOROTHIAZIDE
     Dosage: 1 DOSAGE FORM
  109. HYDROCHLOROTHIAZIDE [Suspect]
     Active Substance: HYDROCHLOROTHIAZIDE
     Dosage: 2 MG, QD
  110. HYDROCHLOROTHIAZIDE [Suspect]
     Active Substance: HYDROCHLOROTHIAZIDE
     Dosage: 2 MG, QD 1 DF (MORNING)(OFF LABEL USE)
  111. HYDROCHLOROTHIAZIDE [Suspect]
     Active Substance: HYDROCHLOROTHIAZIDE
     Dosage: 10 MG, QD
  112. HYDROCHLOROTHIAZIDE [Suspect]
     Active Substance: HYDROCHLOROTHIAZIDE
     Dosage: 1 DF, QD DOSAGE FORM, ONCE A DAY (MORNING)
  113. HYDROCHLOROTHIAZIDE [Suspect]
     Active Substance: HYDROCHLOROTHIAZIDE
     Dosage: 2 MG, QD (MORNING)
  114. HYDROCHLOROTHIAZIDE [Suspect]
     Active Substance: HYDROCHLOROTHIAZIDE
     Dosage: 10 MG
  115. CETIRIZINE [Suspect]
     Active Substance: CETIRIZINE HYDROCHLORIDE
     Indication: Product used for unknown indication
     Dosage: 62.5 UG, QD
  116. CETIRIZINE [Suspect]
     Active Substance: CETIRIZINE HYDROCHLORIDE
     Dosage: 1 DOSAGE FORM, QD (MORNING)
  117. CETIRIZINE [Suspect]
     Active Substance: CETIRIZINE HYDROCHLORIDE
     Dosage: 1 DOSAGE FORM, QD (MORNING)
  118. CETIRIZINE [Suspect]
     Active Substance: CETIRIZINE HYDROCHLORIDE
     Dosage: 10 MG, QD (MORNING)
  119. LINAGLIPTIN [Suspect]
     Active Substance: LINAGLIPTIN
     Indication: Product used for unknown indication
     Dosage: 5 UG, QD
  120. LINAGLIPTIN [Suspect]
     Active Substance: LINAGLIPTIN
     Dosage: 5 MG, QD, ROUTE: UNKNOWN
  121. LINAGLIPTIN [Suspect]
     Active Substance: LINAGLIPTIN
     Dosage: 5 MG, ONCE DAILY (QD) (MORNING)
  122. LINAGLIPTIN [Suspect]
     Active Substance: LINAGLIPTIN
     Dosage: 5 MILLIGRAM, QD
  123. LINAGLIPTIN [Suspect]
     Active Substance: LINAGLIPTIN
     Dosage: 5 UG, QD (MORNING)
  124. LINAGLIPTIN [Suspect]
     Active Substance: LINAGLIPTIN
     Dosage: UNK, ROUTE: UNKNOWN
  125. LINAGLIPTIN [Suspect]
     Active Substance: LINAGLIPTIN
     Dosage: UNK, ROUTE: UNKNOWN
  126. DIGOXIN [Suspect]
     Active Substance: DIGOXIN
     Indication: Cerebrovascular accident prophylaxis
     Dosage: 62.5 G, QD, DOSE FORM: UNKNOWN
  127. DIGOXIN [Suspect]
     Active Substance: DIGOXIN
     Dosage: 4 UG QD
  128. DIGOXIN [Suspect]
     Active Substance: DIGOXIN
     Dosage: 1 UG QD
  129. DIGOXIN [Suspect]
     Active Substance: DIGOXIN
     Dosage: 50 MILLIGRAM
  130. DIGOXIN [Suspect]
     Active Substance: DIGOXIN
     Dosage: 50 MICROGRAM, QD
  131. DIGOXIN [Suspect]
     Active Substance: DIGOXIN
     Dosage: 4 UG
  132. DIGOXIN [Suspect]
     Active Substance: DIGOXIN
     Dosage: 4 UG DAILY
  133. DIGOXIN [Suspect]
     Active Substance: DIGOXIN
     Dosage: 62 UG, QD
  134. DIGOXIN [Suspect]
     Active Substance: DIGOXIN
     Dosage: 1 UG DAILY
  135. DIGOXIN [Suspect]
     Active Substance: DIGOXIN
     Dosage: 63 ?G, QD
  136. DIGOXIN [Suspect]
     Active Substance: DIGOXIN
     Dosage: 50 MG, QD, DOSE FORM: UNKNOWN
  137. DIGOXIN [Suspect]
     Active Substance: DIGOXIN
     Dosage: 62.5 UG, QD, ROUTE: UNKNOWN
  138. DIGOXIN [Suspect]
     Active Substance: DIGOXIN
     Dosage: 63 DF, QD, DOSE FORM: UNKNOWN, ROUTE: UNKNOWN
  139. DIGOXIN [Suspect]
     Active Substance: DIGOXIN
     Dosage: 62.5 UG, QD ONCE DAILY (MORNING), ROUTE: UNKNOWN
  140. APIXABAN [Suspect]
     Active Substance: APIXABAN
     Indication: Atrial fibrillation
     Dosage: 5 MG, QD (5 MILLIGRAM, QD;5 MG, QD, INTRAVENOUS USE(INTREVENOUS OTHERWISE NOT SPECIFIED)), ROUTE;...
     Dates: end: 20180207
  141. APIXABAN [Suspect]
     Active Substance: APIXABAN
     Indication: Cerebrovascular accident prophylaxis
     Dosage: 5 MILLIGRAM
  142. APIXABAN [Suspect]
     Active Substance: APIXABAN
     Dosage: 10 MG QD
  143. APIXABAN [Suspect]
     Active Substance: APIXABAN
     Dosage: 5 MG, 2 SEPARATE DOSES, 1/DAY
  144. APIXABAN [Suspect]
     Active Substance: APIXABAN
     Dosage: 5 MILLIGRAM
  145. APIXABAN [Suspect]
     Active Substance: APIXABAN
     Dosage: 5 MILLIGRAM
  146. APIXABAN [Suspect]
     Active Substance: APIXABAN
  147. APIXABAN [Suspect]
     Active Substance: APIXABAN
     Dosage: 10 MG, QD, ROUTE: UNKNOWN
  148. APIXABAN [Suspect]
     Active Substance: APIXABAN
     Dosage: 10 MG, QD, ROUTE: UNKNOWN
  149. APIXABAN [Suspect]
     Active Substance: APIXABAN
     Dosage: 10 MG, QD, ROUTE: UNKNOWN
  150. APIXABAN [Suspect]
     Active Substance: APIXABAN
     Dosage: 10 MG, QD, ROUTE: UNKNOWN
  151. APIXABAN [Suspect]
     Active Substance: APIXABAN
     Dosage: 5 MG, QD
  152. APIXABAN [Suspect]
     Active Substance: APIXABAN
     Dosage: 5 MG, QD
  153. APIXABAN [Suspect]
     Active Substance: APIXABAN
     Dosage: 10 MILLIGRAM
  154. APIXABAN [Suspect]
     Active Substance: APIXABAN
     Dosage: 10 MG, QD, ROUTE: UNKNOWN
  155. APIXABAN [Suspect]
     Active Substance: APIXABAN
     Dosage: 10 MG, QD, ROUTE: UNKNOWN
  156. APIXABAN [Suspect]
     Active Substance: APIXABAN
     Dosage: 10 MG, QD, ROUTE: UNKNOWN
  157. APIXABAN [Suspect]
     Active Substance: APIXABAN
     Dosage: 10 MG, QD, ROUTE: UNKNOWN
  158. APIXABAN [Suspect]
     Active Substance: APIXABAN
     Dosage: 5 MG
  159. APIXABAN [Suspect]
     Active Substance: APIXABAN
  160. DAPAGLIFLOZIN [Suspect]
     Active Substance: DAPAGLIFLOZIN
     Indication: Product used for unknown indication
  161. DAPAGLIFLOZIN [Suspect]
     Active Substance: DAPAGLIFLOZIN
     Dosage: UNK
  162. DAPAGLIFLOZIN [Suspect]
     Active Substance: DAPAGLIFLOZIN
     Dosage: UNK
  163. CANDESARTAN CILEXETIL [Suspect]
     Active Substance: CANDESARTAN CILEXETIL
     Indication: Product used for unknown indication
     Dosage: 2 MG, DAILY
  164. CANDESARTAN CILEXETIL [Suspect]
     Active Substance: CANDESARTAN CILEXETIL
     Dosage: 2 MG, QD
  165. CANDESARTAN CILEXETIL [Suspect]
     Active Substance: CANDESARTAN CILEXETIL
     Dosage: 2 MG, QD
     Dates: end: 20230316
  166. CANDESARTAN CILEXETIL [Suspect]
     Active Substance: CANDESARTAN CILEXETIL
  167. CANDESARTAN CILEXETIL [Suspect]
     Active Substance: CANDESARTAN CILEXETIL
     Dosage: 2 MG, DAILY
  168. CANDESARTAN CILEXETIL [Suspect]
     Active Substance: CANDESARTAN CILEXETIL
     Dosage: 2 MG, ONCE DAILY (QD) MORNING
  169. CANDESARTAN CILEXETIL [Suspect]
     Active Substance: CANDESARTAN CILEXETIL
     Dosage: 2 MG, QD (MORNING)
  170. CANDESARTAN CILEXETIL [Suspect]
     Active Substance: CANDESARTAN CILEXETIL
     Dosage: 2 MG, QD (MORNING)
  171. CANDESARTAN CILEXETIL [Suspect]
     Active Substance: CANDESARTAN CILEXETIL
     Dosage: 2 MG, QD MORNING, ROUTE: UNKNOWN
  172. CANDESARTAN CILEXETIL [Suspect]
     Active Substance: CANDESARTAN CILEXETIL
     Dosage: 2 MG, DAILY
  173. CANDESARTAN CILEXETIL [Suspect]
     Active Substance: CANDESARTAN CILEXETIL
     Dosage: 2 MG, DAILY
  174. CANDESARTAN CILEXETIL [Suspect]
     Active Substance: CANDESARTAN CILEXETIL
     Dosage: 10 MG, QD
  175. CANDESARTAN CILEXETIL [Suspect]
     Active Substance: CANDESARTAN CILEXETIL
     Dosage: 2 MG, QD (MORNING) ADDITIONAL INFO: MISUSE, OFF LABEL
  176. CANDESARTAN CILEXETIL [Suspect]
     Active Substance: CANDESARTAN CILEXETIL
     Dosage: 2 MG, QD
  177. CANDESARTAN CILEXETIL [Suspect]
     Active Substance: CANDESARTAN CILEXETIL
     Dosage: 10 MG, QD
  178. CANDESARTAN CILEXETIL [Suspect]
     Active Substance: CANDESARTAN CILEXETIL
     Dosage: 2MG, QD ORAL USE
  179. CANDESARTAN CILEXETIL [Suspect]
     Active Substance: CANDESARTAN CILEXETIL
     Dosage: 2 MG, QD MORNING
  180. CANDESARTAN CILEXETIL [Suspect]
     Active Substance: CANDESARTAN CILEXETIL
     Dosage: 2 MG, DAILY
  181. CANDESARTAN CILEXETIL [Suspect]
     Active Substance: CANDESARTAN CILEXETIL
     Dosage: 2 MG, DAILY
  182. CANDESARTAN CILEXETIL [Suspect]
     Active Substance: CANDESARTAN CILEXETIL
     Dosage: 2 MG, QD
  183. CANDESARTAN CILEXETIL [Suspect]
     Active Substance: CANDESARTAN CILEXETIL
     Dosage: 2 MG, ONCE DAILY (QD) MORNING; OFF LABEL USE
  184. CANDESARTAN CILEXETIL [Suspect]
     Active Substance: CANDESARTAN CILEXETIL
     Dosage: 2 MG DAILY
  185. CANDESARTAN CILEXETIL [Suspect]
     Active Substance: CANDESARTAN CILEXETIL
  186. CANDESARTAN CILEXETIL [Suspect]
     Active Substance: CANDESARTAN CILEXETIL
     Dosage: 2 MG DAILY
  187. CANDESARTAN CILEXETIL [Suspect]
     Active Substance: CANDESARTAN CILEXETIL
     Dosage: 2 MG, QD, ROUTE: UNKNOWN
  188. CANDESARTAN CILEXETIL [Suspect]
     Active Substance: CANDESARTAN CILEXETIL
     Dosage: 2 MG DAILY
  189. CANDESARTAN CILEXETIL [Suspect]
     Active Substance: CANDESARTAN CILEXETIL
     Dosage: 2 MG, QD, ROUTE: UNKNOWN
  190. CANDESARTAN CILEXETIL [Suspect]
     Active Substance: CANDESARTAN CILEXETIL
     Dosage: 2 MG, QD (MORNING)
  191. CANDESARTAN CILEXETIL [Suspect]
     Active Substance: CANDESARTAN CILEXETIL
  192. CANDESARTAN CILEXETIL [Suspect]
     Active Substance: CANDESARTAN CILEXETIL
     Dosage: 2 MG, QD (MORNING)
  193. CANDESARTAN CILEXETIL [Suspect]
     Active Substance: CANDESARTAN CILEXETIL
     Dosage: 2 MG, QD MORNING, ROUTE: UNKNOWN
  194. CANDESARTAN CILEXETIL [Suspect]
     Active Substance: CANDESARTAN CILEXETIL
     Dosage: 10 MG, QD
  195. CANDESARTAN CILEXETIL [Suspect]
     Active Substance: CANDESARTAN CILEXETIL
     Dosage: 2MG, QD ORAL USE
  196. CANDESARTAN CILEXETIL [Suspect]
     Active Substance: CANDESARTAN CILEXETIL
     Dosage: 2 MG, DAILY
  197. CANDESARTAN CILEXETIL [Suspect]
     Active Substance: CANDESARTAN CILEXETIL
     Dosage: 2 MG, DAILY
  198. CANDESARTAN CILEXETIL [Suspect]
     Active Substance: CANDESARTAN CILEXETIL
     Dosage: 10 MG, DAILY
  199. CANDESARTAN CILEXETIL [Suspect]
     Active Substance: CANDESARTAN CILEXETIL
     Dosage: 10 MG, QD, ONCE DAILY (QD)
  200. CANDESARTAN CILEXETIL [Suspect]
     Active Substance: CANDESARTAN CILEXETIL
     Dosage: 2 MG, DAILY
  201. CANDESARTAN CILEXETIL [Suspect]
     Active Substance: CANDESARTAN CILEXETIL
     Dosage: 2 MG, ONCE DAILY (QD) MORNING; OFF LABEL USE
  202. CANDESARTAN CILEXETIL [Suspect]
     Active Substance: CANDESARTAN CILEXETIL
  203. CANDESARTAN CILEXETIL [Suspect]
     Active Substance: CANDESARTAN CILEXETIL
     Dosage: 2 MG, QD, ROUTE: UNKNOWN
  204. CANDESARTAN CILEXETIL [Suspect]
     Active Substance: CANDESARTAN CILEXETIL
     Dosage: 10 MG, QD
  205. CANDESARTAN CILEXETIL [Suspect]
     Active Substance: CANDESARTAN CILEXETIL
     Dosage: 2 MG, ONCE DAILY (QD) MORNING; OFF LABEL USE
  206. CANDESARTAN CILEXETIL [Suspect]
     Active Substance: CANDESARTAN CILEXETIL
  207. CANDESARTAN CILEXETIL [Suspect]
     Active Substance: CANDESARTAN CILEXETIL
     Dosage: 2 MG, QD, ROUTE: UNKNOWN
  208. CANDESARTAN CILEXETIL [Suspect]
     Active Substance: CANDESARTAN CILEXETIL
     Dosage: 1 DF, QD, MORNING, INGREDIENT CETRIZINE 10 MG HYDROCHLOROTHIADIDE 2MG
  209. CANDESARTAN CILEXETIL [Suspect]
     Active Substance: CANDESARTAN CILEXETIL
     Dosage: 2 MG, QD, ONCE DAILY (QD) (MORNING)
  210. CANDESARTAN CILEXETIL [Suspect]
     Active Substance: CANDESARTAN CILEXETIL
  211. CANDESARTAN CILEXETIL [Suspect]
     Active Substance: CANDESARTAN CILEXETIL
     Dosage: ONE TO BE TAKEN EACH DAY
  212. CANDESARTAN CILEXETIL [Suspect]
     Active Substance: CANDESARTAN CILEXETIL
  213. CANDESARTAN CILEXETIL [Suspect]
     Active Substance: CANDESARTAN CILEXETIL
     Dosage: 2MG, QD ORAL USE
  214. CANDESARTAN CILEXETIL [Suspect]
     Active Substance: CANDESARTAN CILEXETIL
     Dosage: 2 MG, DAILY
  215. CANDESARTAN CILEXETIL [Suspect]
     Active Substance: CANDESARTAN CILEXETIL
     Dosage: ONE TO BE TAKEN EACH DAY
  216. CANDESARTAN CILEXETIL [Suspect]
     Active Substance: CANDESARTAN CILEXETIL
     Dosage: 10 MG, QD, ONCE DAILY (QD)
  217. NEXIUM [Suspect]
     Active Substance: ESOMEPRAZOLE MAGNESIUM
     Indication: Product used for unknown indication
     Dosage: AFTER EVERY MEAL
  218. NEXIUM [Suspect]
     Active Substance: ESOMEPRAZOLE MAGNESIUM
     Dosage: AFTER EVERY MEAL
  219. ASTRAZENECA COVID-19 VACCINE [Suspect]
     Active Substance: AZD-1222
     Indication: COVID-19 immunisation
     Dosage: 1 UNK
  220. ASTRAZENECA COVID-19 VACCINE [Suspect]
     Active Substance: AZD-1222
     Dosage: 2 UNK
  221. CETIRIZINE HYDROCHLORIDE [Suspect]
     Active Substance: CETIRIZINE HYDROCHLORIDE
     Indication: Product used for unknown indication
     Dosage: 10 MILLIGRAM, ONCE A DAY (MORNING)
  222. CETIRIZINE HYDROCHLORIDE [Suspect]
     Active Substance: CETIRIZINE HYDROCHLORIDE
     Dosage: 62.5 MICROGRAM, ONCE A DAY
  223. CETIRIZINE HYDROCHLORIDE [Suspect]
     Active Substance: CETIRIZINE HYDROCHLORIDE
     Dosage: 1 DOSAGE FORM, ONCE A DAY (MORNING)
  224. CETIRIZINE HYDROCHLORIDE [Suspect]
     Active Substance: CETIRIZINE HYDROCHLORIDE
     Dosage: 1 DOSAGE FORM, ONCE A DAY (MORNING)
  225. ELIQUIS [Suspect]
     Active Substance: APIXABAN
     Indication: Cerebrovascular accident prophylaxis
     Dosage: UNK UNK, QD, ROUTE: UNKNOWN
  226. ELIQUIS [Suspect]
     Active Substance: APIXABAN
     Indication: Atrial fibrillation
     Dosage: 10 MG, QD (DOSAGE FORM: UNSPECIFIED, OFF LABEL DOSING)
  227. ELIQUIS [Suspect]
     Active Substance: APIXABAN
     Dosage: 5 MG, QD
  228. ELIQUIS [Suspect]
     Active Substance: APIXABAN
     Dosage: UNK
  229. ELIQUIS [Suspect]
     Active Substance: APIXABAN
     Dosage: 5 MILLIGRAM, QD
  230. ELIQUIS [Suspect]
     Active Substance: APIXABAN
     Dosage: 10 MG, QD, ROUTE: UNKNOWN
     Dates: start: 20180207, end: 20180207
  231. LINAGLIPTIN [Suspect]
     Active Substance: LINAGLIPTIN
     Indication: Product used for unknown indication
     Dosage: 5 MG EVERY MORNING, DOSE FORM: UNKNOWN
  232. LINAGLIPTIN [Suspect]
     Active Substance: LINAGLIPTIN
     Dosage: 40 MILLIGRAM, ONCE A DAY (40 MG, QD (NIGHT)
  233. LINAGLIPTIN [Suspect]
     Active Substance: LINAGLIPTIN
     Dosage: 5 UG DAILY
  234. LINAGLIPTIN [Suspect]
     Active Substance: LINAGLIPTIN
     Dosage: 5 UG DAILY
  235. LINAGLIPTIN [Suspect]
     Active Substance: LINAGLIPTIN
     Dosage: 5 UG DAILY
  236. LINAGLIPTIN [Suspect]
     Active Substance: LINAGLIPTIN
     Dosage: 5 MG EVERY MORNING
  237. LINAGLIPTIN [Suspect]
     Active Substance: LINAGLIPTIN
     Dosage: 5 MILLIGRAM, ONCE A DAY (MORNING)
  238. ZOCOR [Suspect]
     Active Substance: SIMVASTATIN
     Indication: Product used for unknown indication
     Dosage: 40 MG AT NIGHT
  239. ZOCOR [Suspect]
     Active Substance: SIMVASTATIN
     Dosage: 40 MG AT NIGHT
  240. ZOCOR [Suspect]
     Active Substance: SIMVASTATIN
     Dosage: 40 MG AT NIGHT
  241. ZOCOR [Suspect]
     Active Substance: SIMVASTATIN
     Dosage: ROUTE: UNKNOWN
  242. ZOCOR [Suspect]
     Active Substance: SIMVASTATIN
     Dosage: 40 MG AT NIGHT
  243. ZOCOR [Suspect]
     Active Substance: SIMVASTATIN
     Dosage: 40 MG, QD, ROUTE: UNKNOWN
  244. ZOCOR [Suspect]
     Active Substance: SIMVASTATIN
     Dosage: 40 MG AT NIGHT
  245. FELODIPINE [Suspect]
     Active Substance: FELODIPINE
     Indication: Blood pressure measurement
     Dosage: UNK
  246. CETIRIZINE HYDROCHLORIDE [Suspect]
     Active Substance: CETIRIZINE HYDROCHLORIDE
     Indication: Product used for unknown indication
     Dosage: 10 MG, QD (MORNING)
  247. CETIRIZINE HYDROCHLORIDE [Suspect]
     Active Substance: CETIRIZINE HYDROCHLORIDE
     Dosage: 62.5 UG, QD
  248. CETIRIZINE HYDROCHLORIDE [Suspect]
     Active Substance: CETIRIZINE HYDROCHLORIDE
     Dosage: 10 MG, QD (MORNING)
  249. CETIRIZINE HYDROCHLORIDE [Suspect]
     Active Substance: CETIRIZINE HYDROCHLORIDE
     Dosage: 10 MG, QD ONCE A DAY (MORNING), ORAL USE
  250. CETIRIZINE HYDROCHLORIDE [Suspect]
     Active Substance: CETIRIZINE HYDROCHLORIDE
     Dosage: 10 MG, QD (MORNING)
  251. CETIRIZINE HYDROCHLORIDE [Suspect]
     Active Substance: CETIRIZINE HYDROCHLORIDE
     Dosage: 10 MG, QD (MORNING) ADDITIONAL INFO: ABUSE
  252. CETIRIZINE HYDROCHLORIDE [Suspect]
     Active Substance: CETIRIZINE HYDROCHLORIDE
     Dosage: 1 DF, QD
  253. CETIRIZINE HYDROCHLORIDE [Suspect]
     Active Substance: CETIRIZINE HYDROCHLORIDE
     Dosage: 62.5 UG, QD
  254. CETIRIZINE HYDROCHLORIDE [Suspect]
     Active Substance: CETIRIZINE HYDROCHLORIDE
     Dosage: 1 DF, QD
  255. CETIRIZINE HYDROCHLORIDE [Suspect]
     Active Substance: CETIRIZINE HYDROCHLORIDE
     Dosage: 10 MG, QD (MORNING) OFF LABEL USE, ABUSE
  256. CETIRIZINE HYDROCHLORIDE [Suspect]
     Active Substance: CETIRIZINE HYDROCHLORIDE
     Dosage: 10 MG, QD (MORNING) OFF LABEL USE, ABUSE
  257. CETIRIZINE HYDROCHLORIDE [Suspect]
     Active Substance: CETIRIZINE HYDROCHLORIDE
     Dosage: 10 MG, QD
  258. CETIRIZINE HYDROCHLORIDE [Suspect]
     Active Substance: CETIRIZINE HYDROCHLORIDE
     Dosage: 10 MG, QD (MORNING)
  259. CETIRIZINE HYDROCHLORIDE [Suspect]
     Active Substance: CETIRIZINE HYDROCHLORIDE
     Dosage: 1 DF, QD
  260. CETIRIZINE HYDROCHLORIDE [Suspect]
     Active Substance: CETIRIZINE HYDROCHLORIDE
     Dosage: 10 MG, QD ONCE DAILY
  261. CETIRIZINE HYDROCHLORIDE [Suspect]
     Active Substance: CETIRIZINE HYDROCHLORIDE
     Dosage: 10 MG, QD MORNING ONCE DAILY
  262. CETIRIZINE HYDROCHLORIDE [Suspect]
     Active Substance: CETIRIZINE HYDROCHLORIDE
     Dosage: 10 MG, QD (MORNING)
  263. NAPROXEN [Suspect]
     Active Substance: NAPROXEN
     Indication: Product used for unknown indication
     Dosage: UNK
  264. IMDUR [Suspect]
     Active Substance: ISOSORBIDE MONONITRATE
     Indication: Product used for unknown indication
     Dosage: UNK
  265. IMDUR [Suspect]
     Active Substance: ISOSORBIDE MONONITRATE
     Dosage: 50 MILLIGRAM, QD
  266. IMDUR [Suspect]
     Active Substance: ISOSORBIDE MONONITRATE
     Dosage: 50 MG, QD (MORNING); PREFERRED PRODUCT DESCRIPTION: ISOSORBIDE MONONITRATE
  267. IMDUR [Suspect]
     Active Substance: ISOSORBIDE MONONITRATE
     Dosage: 50 MG, QD ONCE DAILY (MORNING), ORAL USE
  268. IMDUR [Suspect]
     Active Substance: ISOSORBIDE MONONITRATE
     Dosage: UNK
  269. IMDUR [Suspect]
     Active Substance: ISOSORBIDE MONONITRATE
     Dosage: UNK
  270. IMDUR [Suspect]
     Active Substance: ISOSORBIDE MONONITRATE
     Dosage: 50 MILLIGRAM, QD
  271. ISOSORBIDE DINITRATE [Suspect]
     Active Substance: ISOSORBIDE DINITRATE
     Indication: Product used for unknown indication
  272. ISOSORBIDE DINITRATE [Suspect]
     Active Substance: ISOSORBIDE DINITRATE
     Dosage: 50 MILLIGRAM, QD
  273. ISOSORBIDE DINITRATE [Suspect]
     Active Substance: ISOSORBIDE DINITRATE
     Dosage: 50 MILLIGRAM, QD
  274. ISOSORBIDE DINITRATE [Suspect]
     Active Substance: ISOSORBIDE DINITRATE
     Dosage: 50 MILLIGRAM, QD
  275. ISOSORBIDE DINITRATE [Suspect]
     Active Substance: ISOSORBIDE DINITRATE
     Dosage: 50 MG, QD (MORNING)
  276. ISOSORBIDE DINITRATE [Suspect]
     Active Substance: ISOSORBIDE DINITRATE
     Dosage: 50 MG, QD (MORNING), DOSE FORM: UNKNOWN
  277. ISOSORBIDE DINITRATE [Suspect]
     Active Substance: ISOSORBIDE DINITRATE
     Dosage: 50 MG DAILY

REACTIONS (73)
  - Subarachnoid haemorrhage [Recovered/Resolved with Sequelae]
  - Pericarditis [Not Recovered/Not Resolved]
  - Pruritus genital [Recovered/Resolved]
  - Vasculitis [Not Recovered/Not Resolved]
  - Anxiety [Not Recovered/Not Resolved]
  - Sleep terror [Recovered/Resolved]
  - Tinnitus [Not Recovered/Not Resolved]
  - Hallucination [Recovered/Resolved]
  - Arthralgia [Recovered/Resolved]
  - Visual impairment [Not Recovered/Not Resolved]
  - Blood glucose increased [Unknown]
  - Lip swelling [Recovering/Resolving]
  - Muscle twitching [Unknown]
  - Cardiospasm [Not Recovered/Not Resolved]
  - Back pain [Unknown]
  - Amnesia [Not Recovered/Not Resolved]
  - Transient ischaemic attack [Recovered/Resolved]
  - Abdominal pain upper [Unknown]
  - Carotid artery occlusion [Recovered/Resolved]
  - Abdominal discomfort [Recovered/Resolved]
  - Blindness [Recovered/Resolved]
  - Palmoplantar keratoderma [Not Recovered/Not Resolved]
  - Dry skin [Not Recovered/Not Resolved]
  - Alopecia [Recovered/Resolved with Sequelae]
  - Tension headache [Not Recovered/Not Resolved]
  - Dizziness [Recovered/Resolved]
  - Pain of skin [Recovered/Resolved]
  - Peripheral swelling [Recovered/Resolved]
  - Disturbance in attention [Recovered/Resolved]
  - Cognitive disorder [Recovered/Resolved]
  - Memory impairment [Recovered/Resolved]
  - Dyspnoea [Unknown]
  - Fatigue [Recovered/Resolved]
  - Feeling abnormal [Unknown]
  - Dehydration [Unknown]
  - Chest pain [Unknown]
  - Anosmia [Recovered/Resolved]
  - Eye pruritus [Recovered/Resolved]
  - Migraine [Not Recovered/Not Resolved]
  - Malaise [Unknown]
  - Blood glucose increased [Unknown]
  - Myocardial infarction [Recovered/Resolved with Sequelae]
  - Pruritus [Recovering/Resolving]
  - Insomnia [Unknown]
  - Ventricular tachycardia [Not Recovered/Not Resolved]
  - Rash [Recovering/Resolving]
  - Diarrhoea [Recovered/Resolved]
  - Hyperhidrosis [Unknown]
  - Atrial tachycardia [Not Recovered/Not Resolved]
  - Angioedema [Recovered/Resolved]
  - Nausea [Recovered/Resolved]
  - Headache [Not Recovered/Not Resolved]
  - Vomiting [Recovered/Resolved]
  - Muscular weakness [Unknown]
  - Heart rate increased [Unknown]
  - Pyrexia [Unknown]
  - Tachycardia [Unknown]
  - Palpitations [Unknown]
  - Immunisation [Recovered/Resolved]
  - Off label use [Unknown]
  - Intentional product use issue [Unknown]
  - Intentional product misuse [Unknown]
  - Incorrect product administration duration [Unknown]
  - Medication error [Unknown]
  - Off label use [Recovered/Resolved with Sequelae]
  - COVID-19 [Recovered/Resolved]
  - Eye pruritus [Recovered/Resolved]
  - Facial pain [Recovered/Resolved]
  - Diplopia [Not Recovered/Not Resolved]
  - Product use in unapproved indication [Unknown]
  - Intentional product misuse [Unknown]
  - Product use issue [Unknown]
  - Incorrect product administration duration [Unknown]

NARRATIVE: CASE EVENT DATE: 20180207
